FAERS Safety Report 5724679-7 (Version None)
Quarter: 2008Q2

REPORT INFORMATION
  Report Type: 
  Country: None (occurrence: None)
  Receive Date: 20080430
  Receipt Date: 20080430
  Transmission Date: 20081010
  Serious: No
  Sender: FDA-Public Use
  Company Number: None

PATIENT
  Age: 79 Year
  Sex: Male

DRUGS (1)
  1. DIGITEK 125MCG BERTEK PHARMACEUTICALS INC [Suspect]
     Indication: CARDIAC DISORDER
     Dosage: 125MCG DAILY PO
     Route: 048
     Dates: start: 20080418, end: 20080425

REACTIONS (2)
  - HYPERSOMNIA [None]
  - PHARMACEUTICAL PRODUCT COMPLAINT [None]
